FAERS Safety Report 5035459-2 (Version None)
Quarter: 2006Q2

REPORT INFORMATION
  Report Type: 
  Country: None (occurrence: None)
  Receive Date: 20060622
  Receipt Date: 20060613
  Transmission Date: 20061013
  Serious: Yes (Other)
  Sender: FDA-Public Use
  Company Number: 163-20785-06040390

PATIENT
  Sex: Male

DRUGS (1)
  1. THALIDOMIDE (THALIDOMIDE) (CAPSULES) [Suspect]
     Indication: MYELODYSPLASTIC SYNDROME
     Dosage: 100 MG, AT BEDTIME, ORAL
     Route: 048
     Dates: start: 20040424, end: 20050101

REACTIONS (1)
  - MYELODYSPLASTIC SYNDROME [None]
